FAERS Safety Report 6792408-4 (Version None)
Quarter: 2010Q2

REPORT INFORMATION
  Report Type: 
  Country: None (occurrence: None)
  Receive Date: 20100624
  Receipt Date: 20080805
  Transmission Date: 20101027
  Serious: No
  Sender: FDA-Public Use
  Company Number: US-PFIZER INC-2008065403

PATIENT
  Sex: Male
  Weight: 77.272 kg

DRUGS (4)
  1. GENOTROPIN [Suspect]
     Indication: GROWTH HORMONE DEFICIENCY
     Dates: start: 20070101, end: 20080804
  2. ASACOL [Concomitant]
     Indication: CROHN'S DISEASE
  3. MERCAPTOPURINE [Concomitant]
     Indication: CROHN'S DISEASE
  4. FOLIC ACID [Concomitant]
     Indication: CROHN'S DISEASE

REACTIONS (3)
  - DYSPNOEA EXERTIONAL [None]
  - SNORING [None]
  - TONSILLAR HYPERTROPHY [None]
